FAERS Safety Report 11714200 (Version 1)
Quarter: 2015Q4

REPORT INFORMATION
  Report Type: Spontaneous
  Country: US (occurrence: None)
  Receive Date: 20151106
  Receipt Date: 20151106
  Transmission Date: 20160304
  Serious: Yes (Disabling)
  Sender: FDA-Public Use
  Company Number: None

PATIENT
  Age: 32 Year
  Sex: Male
  Weight: 72.58 kg

DRUGS (6)
  1. PRILOSEC [Concomitant]
     Active Substance: OMEPRAZOLE MAGNESIUM
  2. RELORA NATURAL SUPPLEMENT [Concomitant]
  3. MEN^S MULTIVITAMIN [Concomitant]
  4. DAILY PROTEIN SUPPLEMENTS [Concomitant]
  5. PROSCAR [Suspect]
     Active Substance: FINASTERIDE
     Indication: ANDROGENETIC ALOPECIA
     Dosage: 1/5 OF A PILL
     Route: 048
  6. VITAMIN B6 SUPPLEMENT [Concomitant]

REACTIONS (19)
  - Incorrect dose administered [None]
  - Weight increased [None]
  - Muscle spasms [None]
  - Genital hypoaesthesia [None]
  - Libido decreased [None]
  - Hypogonadism [None]
  - Muscle atrophy [None]
  - Initial insomnia [None]
  - Fatigue [None]
  - Anxiety [None]
  - Erectile dysfunction [None]
  - Prostatic pain [None]
  - Chills [None]
  - Depression [None]
  - Wrong technique in product usage process [None]
  - Suicidal ideation [None]
  - Semen viscosity decreased [None]
  - Middle insomnia [None]
  - Testicular pain [None]

NARRATIVE: CASE EVENT DATE: 20151105
